FAERS Safety Report 9408948 (Version 1)
Quarter: 2013Q3

REPORT INFORMATION
  Report Type: Report from Study
  Country: GB (occurrence: GB)
  Receive Date: 20130719
  Receipt Date: 20130719
  Transmission Date: 20140515
  Serious: Yes (Other)
  Sender: FDA-Public Use
  Company Number: GB-AMGEN-GBRCT2011013803

PATIENT
  Age: 72 Year
  Sex: Male
  Weight: 80 kg

DRUGS (2)
  1. ETANERCEPT [Suspect]
     Indication: RHEUMATOID ARTHRITIS
     Dosage: UNK
     Route: 065
     Dates: start: 20050107
  2. METHOTREXATE [Concomitant]
     Dosage: UNK
     Dates: start: 20050107, end: 20100419

REACTIONS (2)
  - Dyspnoea [Unknown]
  - Chronic obstructive pulmonary disease [Unknown]
